FAERS Safety Report 7968839-3 (Version None)
Quarter: 2011Q4

REPORT INFORMATION
  Report Type: 
  Country: None (occurrence: None)
  Receive Date: 20111209
  Receipt Date: 20111130
  Transmission Date: 20120403
  Serious: Yes (Other)
  Sender: FDA-Public Use
  Company Number: PHEH2011US010497

PATIENT
  Sex: Female

DRUGS (8)
  1. METOPROLOL TARTRATE [Suspect]
  2. PROZAC [Concomitant]
  3. ALPRAZOLAM [Concomitant]
  4. LUNESTA [Concomitant]
  5. QUINAPRIL [Suspect]
     Dosage: 2 DF, QD
  6. VALTURNA [Suspect]
     Dosage: 150/160MG
     Dates: start: 20111120
  7. SIMVASTATIN [Concomitant]
  8. CLONIDINE [Suspect]
     Dosage: 2 DF, QD

REACTIONS (4)
  - HYPERTENSION [None]
  - STRESS [None]
  - NEURALGIA [None]
  - INCORRECT DOSE ADMINISTERED [None]
